FAERS Safety Report 17492981 (Version 1)
Quarter: 2020Q1

REPORT INFORMATION
  Report Type: Spontaneous
  Country: ES (occurrence: ES)
  Receive Date: 20200303
  Receipt Date: 20200303
  Transmission Date: 20200409
  Serious: Yes (Other)
  Sender: FDA-Public Use
  Company Number: ES-PFIZER INC-2020092591

PATIENT
  Age: 55 Year
  Sex: Female

DRUGS (1)
  1. IBRANCE [Suspect]
     Active Substance: PALBOCICLIB
     Indication: BREAST CANCER METASTATIC
     Dosage: UNK

REACTIONS (16)
  - Oral pain [Unknown]
  - Fatigue [Unknown]
  - Dry eye [Unknown]
  - Dizziness [Unknown]
  - Decreased immune responsiveness [Unknown]
  - Onychoclasis [Unknown]
  - Eye pain [Unknown]
  - Viral infection [Unknown]
  - Product dose omission [Unknown]
  - Neuropathy peripheral [Unknown]
  - Stomatitis [Unknown]
  - Skin fissures [Unknown]
  - Emotional disorder [Unknown]
  - Amnesia [Unknown]
  - Diarrhoea [Unknown]
  - Feeling abnormal [Unknown]
